FAERS Safety Report 11857036 (Version 1)
Quarter: 2015Q4

REPORT INFORMATION
  Report Type: Spontaneous
  Country: DE (occurrence: DE)
  Receive Date: 20151221
  Receipt Date: 20151221
  Transmission Date: 20160305
  Serious: Yes (Hospitalization, Other)
  Sender: FDA-Public Use
  Company Number: DE-PFIZER INC-2015451218

PATIENT
  Sex: Male
  Weight: 3.2 kg

DRUGS (7)
  1. ZYPREXA [Suspect]
     Active Substance: OLANZAPINE
     Indication: OBSESSIVE-COMPULSIVE DISORDER
     Dosage: 5 MG, DAILY
     Route: 064
     Dates: start: 2010, end: 20150119
  2. VACCINE ANTIGRIPAL [Concomitant]
     Active Substance: INFLUENZA VIRUS VACCINE
     Indication: IMMUNISATION
     Dosage: UNK (UNKNOWN TRIMESTER)
     Route: 064
  3. VENLAFAXINE HCL [Suspect]
     Active Substance: VENLAFAXINE HYDROCHLORIDE
     Indication: OBSESSIVE-COMPULSIVE DISORDER
     Dosage: 150 MG/D TILL WEEK 29
     Route: 064
     Dates: start: 20140419, end: 2014
  4. AMOXICILLIN. [Concomitant]
     Active Substance: AMOXICILLIN
     Indication: STREPTOCOCCUS TEST POSITIVE
     Dosage: UNK (39.1 - 39.2 GESTATIONAL WEEK)
     Route: 064
     Dates: start: 20150118, end: 20150119
  5. FOLIC ACID. [Concomitant]
     Active Substance: FOLIC ACID
     Indication: PROPHYLAXIS OF NEURAL TUBE DEFECT
     Dosage: UNK (0. - 37.2 GESTATIONAL WEEK)
     Route: 064
     Dates: start: 20140419, end: 20150105
  6. VENLAFAXINE HCL [Suspect]
     Active Substance: VENLAFAXINE HYDROCHLORIDE
     Dosage: 225 MG, DAILY
     Route: 064
     Dates: start: 2014, end: 20150119
  7. CERVIDIL /00278201/ [Concomitant]
     Indication: LABOUR INDUCTION
     Dosage: UNK (39.2 - 39.2 GESTATIONAL WEEK)
     Route: 064
     Dates: start: 20150119, end: 20150119

REACTIONS (6)
  - Drug withdrawal syndrome [Recovered/Resolved]
  - Agitation neonatal [Recovered/Resolved]
  - Maternal exposure during pregnancy [Recovered/Resolved]
  - Oxygen saturation decreased [Recovered/Resolved]
  - Lethargy [Recovered/Resolved]
  - Mental status changes [Recovered/Resolved]

NARRATIVE: CASE EVENT DATE: 20150119
